FAERS Safety Report 4899348-6 (Version None)
Quarter: 2006Q1

REPORT INFORMATION
  Report Type: 
  Country: None (occurrence: None)
  Receive Date: 20060202
  Receipt Date: 20060118
  Transmission Date: 20060701
  Serious: Yes (Hospitalization)
  Sender: FDA-Public Use
  Company Number: HQWYE402418JAN06

PATIENT
  Age: 48 Year
  Sex: Female

DRUGS (5)
  1. ENBREL [Suspect]
     Indication: RHEUMATOID ARTHRITIS
     Route: 058
     Dates: start: 20050801
  2. PREDNISONE [Concomitant]
  3. IBUPROFEN [Concomitant]
  4. OMEPRAZOLE [Concomitant]
  5. CARBAMAZEPINE [Concomitant]
     Indication: CEREBRAL DISORDER

REACTIONS (4)
  - CHEST PAIN [None]
  - HEADACHE [None]
  - TACHYCARDIA [None]
  - TROPONIN INCREASED [None]
